FAERS Safety Report 22060351 (Version 3)
Quarter: 2023Q1

REPORT INFORMATION
  Report Type: Spontaneous
  Country: US (occurrence: US)
  Receive Date: 20230303
  Receipt Date: 20230307
  Transmission Date: 20230418
  Serious: Yes (Other)
  Sender: FDA-Public Use
  Company Number: US-JNJFOC-20230253154

PATIENT
  Sex: Female

DRUGS (1)
  1. TYLENOL COLD PLUS FLU SEVERE [Suspect]
     Active Substance: ACETAMINOPHEN\DEXTROMETHORPHAN HYDROBROMIDE\GUAIFENESIN\PHENYLEPHRINE HYDROCHLORIDE
     Indication: Nasopharyngitis
     Dosage: TOOK ONLY THE DAYTIME
     Route: 065

REACTIONS (2)
  - Hallucination, visual [Recovered/Resolved]
  - Inappropriate schedule of product administration [Recovered/Resolved]
